FAERS Safety Report 13234116 (Version 2)
Quarter: 2017Q1

REPORT INFORMATION
  Report Type: Report from Study
  Country: US (occurrence: US)
  Receive Date: 20170215
  Receipt Date: 20170301
  Transmission Date: 20170428
  Serious: Yes (Other)
  Sender: FDA-Public Use
  Company Number: PHEH2017US004240

PATIENT
  Age: 57 Year
  Sex: Male
  Weight: 57.6 kg

DRUGS (1)
  1. GILENYA [Suspect]
     Active Substance: FINGOLIMOD HYDROCHLORIDE
     Indication: RELAPSING-REMITTING MULTIPLE SCLEROSIS
     Dosage: 0.5 MG, QD
     Route: 048
     Dates: start: 20130801

REACTIONS (1)
  - Mobility decreased [Recovered/Resolved]

NARRATIVE: CASE EVENT DATE: 20160301
